FAERS Safety Report 14441681 (Version 1)
Quarter: 2018Q1

REPORT INFORMATION
  Report Type: Report from Study
  Country: JP (occurrence: JP)
  Receive Date: 20180125
  Receipt Date: 20180125
  Transmission Date: 20180509
  Serious: Yes (Death, Life-Threatening, Hospitalization, Other)
  Sender: FDA-Public Use
  Company Number: JP-PFIZER INC-2018032129

PATIENT
  Age: 59 Year
  Sex: Male

DRUGS (42)
  1. ACICLOVIR [Concomitant]
     Active Substance: ACYCLOVIR
     Dosage: UNK
     Dates: start: 20160312, end: 20160716
  2. SOMATOSTATIN [Concomitant]
     Active Substance: SOMATOSTATIN
     Dosage: UNK
     Dates: start: 20160622, end: 20160627
  3. AMBISOME [Suspect]
     Active Substance: AMPHOTERICIN B
     Dosage: 300 MG, 1X/DAY
     Route: 065
     Dates: start: 20160720, end: 20160723
  4. FOSCAVIR [Concomitant]
     Active Substance: FOSCARNET SODIUM
     Dosage: UNK
     Dates: start: 20160523
  5. HUMALOG [Concomitant]
     Active Substance: INSULIN LISPRO
     Dosage: UNK
     Dates: start: 20160426
  6. NOVOLIN R [Concomitant]
     Active Substance: INSULIN HUMAN
     Dosage: UNK
     Dates: start: 20160609
  7. OXYGEN. [Concomitant]
     Active Substance: OXYGEN
     Dosage: UNK
     Dates: start: 20160703
  8. SILVER PROTEIN [Concomitant]
     Active Substance: SILVER
     Dosage: UNK
     Dates: start: 20160719
  9. MEROPEN [Suspect]
     Active Substance: MEROPENEM
     Indication: SEPSIS
     Dosage: UNK (1 TO 2 GRAMS)
     Route: 065
     Dates: start: 20160716, end: 20160717
  10. MEROPEN [Suspect]
     Active Substance: MEROPENEM
     Dosage: 1 G, DAILY
     Route: 065
     Dates: start: 20160718
  11. AMBISOME [Suspect]
     Active Substance: AMPHOTERICIN B
     Dosage: 150 MG, 1X/DAY
     Route: 065
     Dates: start: 20160724, end: 20160730
  12. ITRACONAZOL [Concomitant]
     Active Substance: ITRACONAZOLE
     Dosage: UNK
     Dates: start: 20160421
  13. METHYLPREDNISOLON [Concomitant]
     Active Substance: METHYLPREDNISOLONE
     Dosage: UNK
     Dates: start: 20160216
  14. SAMSCA [Concomitant]
     Active Substance: TOLVAPTAN
     Dosage: UNK
     Dates: start: 20160527, end: 20160716
  15. NEUTROGIN [Concomitant]
     Active Substance: LENOGRASTIM
     Dosage: UNK
     Dates: start: 20160713
  16. TRANSAMIN [Concomitant]
     Active Substance: TRANEXAMIC ACID
     Dosage: UNK
     Dates: start: 20160716
  17. NOREPINEPHRINE. [Concomitant]
     Active Substance: NOREPINEPHRINE
     Dosage: UNK
     Dates: start: 20160718
  18. BIO-THREE [Concomitant]
     Active Substance: HERBALS
     Dosage: UNK
     Dates: start: 20160414, end: 20160716
  19. ADONA (AC-17) [Concomitant]
     Dosage: UNK
     Dates: start: 20160709, end: 20160715
  20. TARGOCID [Concomitant]
     Active Substance: TEICOPLANIN
     Indication: FUNGAL INFECTION
     Dosage: UNK
     Dates: start: 20160709
  21. SANDOSTATIN [Concomitant]
     Active Substance: OCTREOTIDE ACETATE
     Dosage: UNK
     Dates: start: 20160622, end: 20160627
  22. AMLODIPINE BESILATE [Concomitant]
     Active Substance: AMLODIPINE BESYLATE
     Dosage: UNK
     Dates: start: 20160404, end: 20160716
  23. SOLU-MEDROL [Concomitant]
     Active Substance: METHYLPREDNISOLONE SODIUM SUCCINATE
     Dosage: UNK
     Dates: start: 20160627, end: 20160708
  24. PREDONINE [Concomitant]
     Active Substance: PREDNISOLONE
     Dosage: UNK
     Dates: start: 20160717
  25. MELPHALAN. [Concomitant]
     Active Substance: MELPHALAN
     Dosage: UNK
     Dates: start: 20160216
  26. MEDROL [Suspect]
     Active Substance: METHYLPREDNISOLONE
     Indication: PROPHYLAXIS AGAINST GRAFT VERSUS HOST DISEASE
     Dosage: UNK (60-4 MG/DAY)
     Route: 048
     Dates: start: 20160310, end: 20160716
  27. MEROPEN [Concomitant]
     Active Substance: MEROPENEM
     Dosage: UNK
     Dates: start: 20160406, end: 20160716
  28. VASOLAN [Concomitant]
     Active Substance: VERAPAMIL HYDROCHLORIDE
     Dosage: UNK
     Dates: start: 20160412, end: 20160716
  29. FLUDARABIN [Concomitant]
     Active Substance: FLUDARABINE PHOSPHATE
     Dosage: UNK
     Dates: start: 20160216
  30. BIOFERMIN R [Concomitant]
     Active Substance: BACILLUS SUBTILIS\LACTOBACILLUS ACIDOPHILUS\STREPTOCOCCUS FAECAIS
     Dosage: UNK
     Dates: start: 20160720
  31. ZOSYN [Concomitant]
     Active Substance: PIPERACILLIN SODIUM\TAZOBACTAM SODIUM
     Dosage: UNK
     Dates: start: 20160709
  32. CANCIDAS [Concomitant]
     Active Substance: CASPOFUNGIN ACETATE
     Dosage: UNK
     Dates: start: 20160711, end: 20160725
  33. VFEND [Concomitant]
     Active Substance: VORICONAZOLE
     Dosage: UNK
     Dates: start: 20160709, end: 20160730
  34. HUMULIN R [Concomitant]
     Active Substance: INSULIN HUMAN
     Dosage: UNK
     Dates: start: 20160717
  35. MIDAZOLAM [Concomitant]
     Active Substance: MIDAZOLAM HYDROCHLORIDE
     Dosage: UNK
     Dates: start: 20160716
  36. HYDROCORTONE [Concomitant]
     Active Substance: HYDROCORTISONE
     Dosage: UNK
     Dates: start: 20160719
  37. AMBISOME [Suspect]
     Active Substance: AMPHOTERICIN B
     Indication: BRONCHOPULMONARY ASPERGILLOSIS
     Dosage: 150 MG, 1X/DAY
     Route: 065
     Dates: start: 20160716, end: 20160719
  38. LANTUS [Concomitant]
     Active Substance: INSULIN GLARGINE
     Dosage: UNK
     Dates: start: 20160502
  39. DOPAMIN [Concomitant]
     Active Substance: DOPAMINE HYDROCHLORIDE
     Dosage: UNK
     Dates: start: 20160718
  40. FENTANYL. [Concomitant]
     Active Substance: FENTANYL
     Dosage: UNK
     Dates: start: 20160716
  41. OMEPRAZOLE. [Concomitant]
     Active Substance: OMEPRAZOLE
     Dosage: UNK
     Dates: start: 20160717
  42. ALBUMIN [Concomitant]
     Active Substance: ALBUMIN HUMAN
     Dosage: UNK
     Dates: start: 20160713

REACTIONS (5)
  - Acute kidney injury [Fatal]
  - Acute graft versus host disease in intestine [Fatal]
  - Bronchopulmonary aspergillosis [Fatal]
  - Sepsis [Fatal]
  - Ascites [Fatal]

NARRATIVE: CASE EVENT DATE: 20160310
